FAERS Safety Report 19869366 (Version 2)
Quarter: 2021Q4

REPORT INFORMATION
  Report Type: Other
  Country: GB (occurrence: GB)
  Receive Date: 20210923
  Receipt Date: 20211002
  Transmission Date: 20220303
  Serious: Yes (Other)
  Sender: FDA-Public Use
  Company Number: GB-CELLTRION INC.-2020GB019284

PATIENT

DRUGS (19)
  1. INFLIXIMAB [Suspect]
     Active Substance: INFLIXIMAB
     Indication: Product used for unknown indication
     Dosage: 300 MG
     Route: 065
  2. INFLIXIMAB [Suspect]
     Active Substance: INFLIXIMAB
     Dosage: 300 MG
     Route: 065
  3. INFLIXIMAB [Suspect]
     Active Substance: INFLIXIMAB
     Dosage: 300 MG
     Route: 065
  4. INFLIXIMAB [Suspect]
     Active Substance: INFLIXIMAB
     Dosage: 300 MG
     Route: 065
  5. INFLIXIMAB [Suspect]
     Active Substance: INFLIXIMAB
     Dosage: 330 MG
     Route: 042
     Dates: start: 20201117
  6. INFLIXIMAB [Suspect]
     Active Substance: INFLIXIMAB
     Dosage: 330 MG
     Route: 042
     Dates: start: 20201117
  7. SODIUM CHLORIDE [Suspect]
     Active Substance: SODIUM CHLORIDE
     Indication: Medication dilution
     Dosage: UNK
     Route: 065
  8. SODIUM CHLORIDE [Suspect]
     Active Substance: SODIUM CHLORIDE
     Dosage: UNK
     Route: 065
  9. SODIUM CHLORIDE [Suspect]
     Active Substance: SODIUM CHLORIDE
     Dosage: UNK
     Route: 065
  10. SODIUM CHLORIDE [Suspect]
     Active Substance: SODIUM CHLORIDE
     Dosage: UNK
     Route: 065
  11. SODIUM CHLORIDE [Suspect]
     Active Substance: SODIUM CHLORIDE
     Dosage: 250 ML (DOSE FORM: 230)
     Route: 042
     Dates: start: 20201117
  12. SODIUM CHLORIDE [Suspect]
     Active Substance: SODIUM CHLORIDE
     Dosage: 250 ML (DOSE FORM: 230)
     Route: 042
     Dates: start: 20201117
  13. SODIUM CHLORIDE [Suspect]
     Active Substance: SODIUM CHLORIDE
     Dosage: 10 ML
  14. WATER [Suspect]
     Active Substance: WATER
     Indication: Medication dilution
     Dosage: UNK
     Route: 065
  15. WATER [Suspect]
     Active Substance: WATER
     Dosage: UNK
     Route: 065
  16. WATER [Suspect]
     Active Substance: WATER
     Dosage: UNK
     Route: 065
  17. WATER [Suspect]
     Active Substance: WATER
     Dosage: UNK
     Route: 065
  18. WATER [Suspect]
     Active Substance: WATER
     Dosage: UNK (DOSE FORM: 236)
     Route: 042
     Dates: start: 20201117
  19. WATER [Suspect]
     Active Substance: WATER
     Dosage: UNK (DOSE FORM: 236)
     Route: 042
     Dates: start: 20201117

REACTIONS (5)
  - Haemorrhoid infection [Unknown]
  - Weight increased [Unknown]
  - Abdominal pain [Recovered/Resolved]
  - Diarrhoea [Recovered/Resolved]
  - Intentional product use issue [Unknown]

NARRATIVE: CASE EVENT DATE: 20210901
